FAERS Safety Report 6151483-0 (Version None)
Quarter: 2009Q2

REPORT INFORMATION
  Report Type: 
  Country: None (occurrence: None)
  Receive Date: 20090410
  Receipt Date: 20090330
  Transmission Date: 20091009
  Serious: Yes (Life-Threatening, Hospitalization)
  Sender: FDA-Public Use
  Company Number: GB-ABBOTT-09P-167-0559014-00

PATIENT
  Age: 65 Year
  Sex: Male

DRUGS (15)
  1. VALPROATE SODIUM [Suspect]
     Indication: GLIOBLASTOMA
     Dosage: 1000 MG MANE AND 500 MG NOCTE, DAILY DOSE 1500 MG
     Route: 048
     Dates: start: 20080401, end: 20090201
  2. VALPROATE SODIUM [Suspect]
     Indication: CONVULSION
  3. LOMUSTINE [Suspect]
     Indication: CHEMOTHERAPY
     Dates: start: 20081216, end: 20081216
  4. LACTULOSE [Concomitant]
     Indication: DRUG USE FOR UNKNOWN INDICATION
     Route: 065
  5. DEXAMETHASONE 4MG TAB [Concomitant]
     Indication: DRUG USE FOR UNKNOWN INDICATION
     Route: 048
     Dates: start: 20080624
  6. CLOBAZAM [Concomitant]
     Indication: DRUG USE FOR UNKNOWN INDICATION
  7. KEPPRA [Concomitant]
     Indication: DRUG USE FOR UNKNOWN INDICATION
  8. BETNOVATE [Concomitant]
     Indication: DRUG USE FOR UNKNOWN INDICATION
  9. THYROXINE [Concomitant]
     Indication: DRUG USE FOR UNKNOWN INDICATION
     Dates: start: 20020101
  10. OMEPRAZOLE [Concomitant]
     Indication: DRUG USE FOR UNKNOWN INDICATION
     Route: 048
     Dates: start: 20080422
  11. OMEPRAZOLE [Concomitant]
     Route: 048
     Dates: start: 20090201
  12. DERMOL [Concomitant]
     Indication: DRUG USE FOR UNKNOWN INDICATION
  13. LACRI-LUBE [Concomitant]
     Indication: DRUG USE FOR UNKNOWN INDICATION
     Route: 047
  14. PROCARBAZINE [Concomitant]
     Indication: CHEMOTHERAPY
     Route: 048
     Dates: start: 20081216, end: 20081225
  15. VINCRISTINE [Concomitant]
     Indication: CHEMOTHERAPY
     Route: 042
     Dates: start: 20081216, end: 20081216

REACTIONS (5)
  - CONVULSION [None]
  - HEPATOCELLULAR INJURY [None]
  - JAUNDICE [None]
  - LIVER FUNCTION TEST ABNORMAL [None]
  - RASH [None]
